FAERS Safety Report 16710615 (Version 3)
Quarter: 2019Q3

REPORT INFORMATION
  Report Type: Spontaneous
  Country: AT (occurrence: AT)
  Receive Date: 20190816
  Receipt Date: 20190930
  Transmission Date: 20191004
  Serious: Yes (Other)
  Sender: FDA-Public Use
  Company Number: AT-AMGEN-AUTSP2019127800

PATIENT
  Age: 60 Year
  Sex: Female
  Weight: 56 kg

DRUGS (1)
  1. PROLIA [Suspect]
     Active Substance: DENOSUMAB
     Indication: OSTEOPOROSIS
     Dosage: UNK, Q6MO
     Route: 065
     Dates: start: 20180524

REACTIONS (8)
  - Malaise [Unknown]
  - Spinal fracture [Unknown]
  - Fatigue [Unknown]
  - Rebound effect [Unknown]
  - Dental restoration failure [Unknown]
  - Onychoclasis [Unknown]
  - Headache [Unknown]
  - Bone density abnormal [Unknown]

NARRATIVE: CASE EVENT DATE: 2019
